FAERS Safety Report 19196919 (Version 1)
Quarter: 2021Q2

REPORT INFORMATION
  Report Type: Spontaneous
  Country: JP (occurrence: JP)
  Receive Date: 20210429
  Receipt Date: 20210429
  Transmission Date: 20210717
  Serious: Yes (Other)
  Sender: FDA-Public Use
  Company Number: JP-PURDUE-USA-2021-0252500

PATIENT
  Age: 89 Year
  Sex: Male

DRUGS (2)
  1. NORSPAN [Suspect]
     Active Substance: BUPRENORPHINE
     Indication: PRODUCT USED FOR UNKNOWN INDICATION
     Dosage: 12.5 MCG, Q1H (1 PATCH OF 10 MCG/H AND A HALF?COVERED 5 MCG/H TAPE)
     Route: 062
  2. NORSPAN [Suspect]
     Active Substance: BUPRENORPHINE
     Dosage: 15 MCG, Q1H
     Route: 062

REACTIONS (4)
  - Wrong technique in product usage process [Unknown]
  - Neoplasm malignant [Unknown]
  - Dizziness [Unknown]
  - Somnolence [Unknown]
